FAERS Safety Report 10075808 (Version 1)
Quarter: 2014Q2

REPORT INFORMATION
  Report Type: Spontaneous
  Country: US (occurrence: US)
  Receive Date: 20140414
  Receipt Date: 20140414
  Transmission Date: 20141212
  Serious: No
  Sender: FDA-Public Use
  Company Number: US-009507513-1404USA006421

PATIENT
  Sex: Female

DRUGS (2)
  1. COZAAR [Suspect]
     Indication: BLOOD PRESSURE
     Dosage: UNK
     Route: 048
  2. HYZAAR [Suspect]
     Indication: BLOOD PRESSURE
     Dosage: UNK
     Route: 048

REACTIONS (3)
  - Loss of consciousness [Unknown]
  - Drug ineffective [Unknown]
  - Dizziness [Unknown]
